FAERS Safety Report 8499757-2 (Version None)
Quarter: 2012Q3

REPORT INFORMATION
  Report Type: 
  Country: None (occurrence: None)
  Receive Date: 20120710
  Receipt Date: 20120706
  Transmission Date: 20120928
  Serious: No
  Sender: FDA-Public Use
  Company Number: US-PFIZER INC-2012162538

PATIENT
  Sex: Female

DRUGS (2)
  1. XANAX [Suspect]
     Dosage: UNK
  2. FENTANYL [Interacting]
     Dosage: 50 MCG, UNK

REACTIONS (2)
  - DRUG INTERACTION [None]
  - DRUG INEFFECTIVE [None]
